FAERS Safety Report 4416729-5 (Version None)
Quarter: 2004Q3

REPORT INFORMATION
  Report Type: 
  Country: None (occurrence: None)
  Receive Date: 20040802
  Receipt Date: 20040721
  Transmission Date: 20050211
  Serious: Yes (Death, Hospitalization)
  Sender: FDA-Public Use
  Company Number: WAES 0407USA02174

PATIENT
  Age: 91 Year
  Sex: Female

DRUGS (5)
  1. COZAAR [Suspect]
     Indication: HYPERTENSION
     Dosage: 25 MG
     Route: 048
     Dates: start: 20020116, end: 20040130
  2. FOSAMAX [Concomitant]
  3. SOLETON [Concomitant]
  4. TAGAMET [Concomitant]
  5. MENATETRENONE [Concomitant]

REACTIONS (2)
  - CARDIAC FAILURE ACUTE [None]
  - CARDIAC FAILURE CHRONIC [None]
